FAERS Safety Report 8478733-X (Version None)
Quarter: 2012Q2

REPORT INFORMATION
  Report Type: 
  Country: None (occurrence: None)
  Receive Date: 20120629
  Receipt Date: 20120621
  Transmission Date: 20120825
  Serious: Yes (Hospitalization)
  Sender: FDA-Public Use
  Company Number: CN-US-EMD SERONO, INC.-7136361

PATIENT
  Age: 38 Year
  Sex: Female
  Weight: 53 kg

DRUGS (2)
  1. GONAL-F [Suspect]
     Indication: IN VITRO FERTILISATION
     Route: 058
     Dates: start: 20120501, end: 20120503
  2. TRIPTORELIN ACETATE [Concomitant]
     Indication: IN VITRO FERTILISATION
     Route: 030
     Dates: start: 20120328, end: 20120328

REACTIONS (1)
  - PANCREATITIS [None]
